FAERS Safety Report 5921332-1 (Version None)
Quarter: 2008Q4

REPORT INFORMATION
  Report Type: 
  Country: None (occurrence: None)
  Receive Date: 20081016
  Receipt Date: 20081007
  Transmission Date: 20090506
  Serious: Yes (Hospitalization)
  Sender: FDA-Public Use
  Company Number: US-ABBOTT-08P-163-0480542-00

PATIENT
  Sex: Female
  Weight: 87.5 kg

DRUGS (2)
  1. DEPAKOTE [Suspect]
     Indication: BIPOLAR I DISORDER
     Route: 048
     Dates: start: 20080331, end: 20080722
  2. ZIPRASIDONE HCL [Concomitant]
     Indication: BIPOLAR I DISORDER
     Dates: start: 20080610, end: 20080810

REACTIONS (1)
  - INTRA-UTERINE DEATH [None]
